FAERS Safety Report 25527359 (Version 1)
Quarter: 2025Q3

REPORT INFORMATION
  Report Type: Spontaneous
  Country: EU (occurrence: EU)
  Receive Date: 20250708
  Receipt Date: 20250708
  Transmission Date: 20251020
  Serious: Yes (Other)
  Sender: IDORSIA PHARMACEUTICALS
  Company Number: None

PATIENT
  Age: 20 Year
  Sex: Female

DRUGS (2)
  1. QUVIVIQ [Suspect]
     Active Substance: DARIDOREXANT
     Indication: Product used for unknown indication
     Route: 048
     Dates: start: 20250616, end: 20250617
  2. MELATONIN [Concomitant]
     Active Substance: MELATONIN
     Dates: start: 20250616

REACTIONS (4)
  - Condition aggravated [Recovered/Resolved]
  - Post-traumatic stress disorder [Recovered/Resolved]
  - Suicidal ideation [Recovered/Resolved]
  - Sleep paralysis [Recovered/Resolved]

NARRATIVE: CASE EVENT DATE: 20250617
